FAERS Safety Report 7358307 (Version 3)
Quarter: 2012Q4

REPORT INFORMATION
  Report Type: Report from Study
  Country: US (occurrence: US)
  Receive Date: 20100419
  Receipt Date: 20121217
  Transmission Date: 20130627
  Serious: Yes (Hospitalization)
  Sender: FDA-Public Use
  Company Number: US-CELGENEUS-163-20785-10021368

PATIENT
  Age: 83 Year
  Sex: Female
  Weight: 45 kg

DRUGS (8)
  1. THALOMID [Suspect]
     Indication: MYELOMA
     Dosage: 100 Milligram
     Route: 048
     Dates: start: 20090630
  2. THALOMID [Suspect]
     Dosage: 100 Milligram
     Route: 048
     Dates: start: 20100201, end: 20100205
  3. MELPHALAN [Suspect]
     Indication: MYELOMA
     Dosage: 1.2857 milligram/sq. meter
     Route: 048
     Dates: start: 20090630
  4. MELPHALAN [Suspect]
     Dosage: 1.2857 milligram/sq. meter
     Route: 048
     Dates: start: 20100201, end: 20100205
  5. HYDROCHLOROTHIAZIDE [Suspect]
     Indication: DRUG USE FOR UNKNOWN INDICATION
     Route: 065
  6. PREDNISONE [Suspect]
     Indication: MULTIPLE MYELOMA
     Dosage: 100mg
     Route: 048
     Dates: start: 20090630
  7. PREDNISONE [Suspect]
     Dosage: 100mg
     Route: 048
     Dates: start: 20100201, end: 20100205
  8. ENTERIC COATED ASPIRIN [Concomitant]
     Indication: DRUG USE FOR UNKNOWN INDICATION
     Dosage: 325 Milligram
     Route: 048

REACTIONS (2)
  - Pancreatic carcinoma [Not Recovered/Not Resolved]
  - Pancreatitis [Recovered/Resolved]
